FAERS Safety Report 10050322 (Version 1)
Quarter: 2014Q1

REPORT INFORMATION
  Report Type: Spontaneous
  Country: US (occurrence: None)
  Receive Date: 20140331
  Receipt Date: 20140331
  Transmission Date: 20141002
  Serious: Yes (Other)
  Sender: FDA-Public Use
  Company Number: None

PATIENT
  Age: 29 Year
  Sex: Male
  Weight: 70.31 kg

DRUGS (1)
  1. CHANTIX [Suspect]
     Indication: SMOKING CESSATION THERAPY
     Route: 048
     Dates: start: 20140116, end: 20140206

REACTIONS (12)
  - Depression [None]
  - Feeling abnormal [None]
  - Vision blurred [None]
  - Brain injury [None]
  - Anxiety [None]
  - Panic reaction [None]
  - Insomnia [None]
  - Night sweats [None]
  - Headache [None]
  - Suicidal ideation [None]
  - Restless legs syndrome [None]
  - Stress [None]
